FAERS Safety Report 21842830 (Version 1)
Quarter: 2023Q1

REPORT INFORMATION
  Report Type: Spontaneous
  Country: US (occurrence: None)
  Receive Date: 20230109
  Receipt Date: 20230109
  Transmission Date: 20230418
  Serious: No
  Sender: FDA-Public Use
  Company Number: None

PATIENT

DRUGS (2)
  1. BRIVIACT [Suspect]
     Active Substance: BRIVARACETAM
  2. OXCARBAZEPINE [Suspect]
     Active Substance: OXCARBAZEPINE

REACTIONS (2)
  - Loss of consciousness [None]
  - Malaise [None]

NARRATIVE: CASE EVENT DATE: 20180128
